FAERS Safety Report 15720293 (Version 1)
Quarter: 2018Q4

REPORT INFORMATION
  Report Type: Spontaneous
  Country: US (occurrence: US)
  Receive Date: 20181213
  Receipt Date: 20181213
  Transmission Date: 20190205
  Serious: Yes (Hospitalization)
  Sender: FDA-Public Use
  Company Number: US-TEVA-2018-US-986415

PATIENT
  Age: 35 Year
  Sex: Male

DRUGS (5)
  1. OXYCODONE [Suspect]
     Active Substance: OXYCODONE
     Dosage: 720 MILLIGRAM DAILY; 720 MG OF MORPHINE EQUIVALENTS DAILY
     Route: 065
  2. OXYCODONE [Suspect]
     Active Substance: OXYCODONE
     Indication: SICKLE CELL ANAEMIA WITH CRISIS
     Dosage: 479 MILLIGRAM DAILY; 479 MG OF MORPHINE EQUIVALENTS DAILY
     Route: 065
  3. OXYCODONE [Suspect]
     Active Substance: OXYCODONE
     Dosage: 388 MILLIGRAM DAILY; 388 MG OF MORPHINE EQUIVALENTS DAILY
     Route: 065
  4. OXYCODONE [Suspect]
     Active Substance: OXYCODONE
     Indication: BREAKTHROUGH PAIN
     Dosage: 240 MILLIGRAM DAILY; 240 MG OF MORPHINE EQUIVALENTS DAILY, WITH UP TO 60 MG MME AS NEEDED
     Route: 065
  5. OXYCODONE [Suspect]
     Active Substance: OXYCODONE
     Dosage: 960 MILLIGRAM DAILY; 960 MG OF MORPHINE EQUIVALENTS DAILY AS REQUIRED
     Route: 065

REACTIONS (1)
  - Hyperaesthesia [Recovered/Resolved]
